FAERS Safety Report 5956869-2 (Version None)
Quarter: 2008Q4

REPORT INFORMATION
  Report Type: 
  Country: None (occurrence: None)
  Receive Date: 20081118
  Receipt Date: 20081106
  Transmission Date: 20090506
  Serious: Yes (Life-Threatening)
  Sender: FDA-Public Use
  Company Number: JP-SANOFI-SYNTHELABO-A01200814349

PATIENT
  Age: 74 Year
  Sex: Female

DRUGS (4)
  1. FLUOROURACIL [Suspect]
     Dosage: 500MG/BODY IN BOLUS THEN 3000MG/BODY/D1-2 AS CONTINUOUS INFUSION
     Route: 040
     Dates: start: 20081031, end: 20081031
  2. FLUOROURACIL [Suspect]
     Route: 041
     Dates: start: 20081031, end: 20081031
  3. ISOVORIN [Suspect]
     Route: 041
     Dates: start: 20081031, end: 20081031
  4. ELPLAT [Suspect]
     Indication: LARGE INTESTINE CARCINOMA
     Route: 041
     Dates: start: 20081031, end: 20081031

REACTIONS (1)
  - HYPERAMMONAEMIA [None]
